FAERS Safety Report 7965719-4 (Version None)
Quarter: 2011Q4

REPORT INFORMATION
  Report Type: 
  Country: None (occurrence: None)
  Receive Date: 20111208
  Receipt Date: 20111201
  Transmission Date: 20120403
  Serious: Yes (Hospitalization)
  Sender: FDA-Public Use
  Company Number: AU-B.I. PHARMACEUTICALS,INC./RIDGEFIELD-2011-AU-02338AU

PATIENT
  Sex: Male
  Weight: 76.4 kg

DRUGS (4)
  1. ATENOLOL [Concomitant]
  2. PERINDOPRIL ERBUMINE [Concomitant]
  3. PRADAXA [Suspect]
     Indication: ATRIAL FIBRILLATION
     Dosage: 220 MG
     Dates: start: 20110801
  4. DIGOXIN [Concomitant]

REACTIONS (3)
  - DYSPNOEA [None]
  - MALAISE [None]
  - CEREBROVASCULAR ACCIDENT [None]
